FAERS Safety Report 16969433 (Version 8)
Quarter: 2020Q1

REPORT INFORMATION
  Report Type: Spontaneous
  Country: RU (occurrence: RU)
  Receive Date: 20191029
  Receipt Date: 20200213
  Transmission Date: 20200409
  Serious: Yes (Other)
  Sender: FDA-Public Use
  Company Number: RU-PFIZER INC-2019445780

PATIENT
  Age: 71 Year
  Sex: Female
  Weight: 80 kg

DRUGS (4)
  1. VIDAZA [Concomitant]
     Active Substance: AZACITIDINE
     Dosage: UNK
     Route: 058
     Dates: start: 20191014, end: 20191021
  2. TRITACE [Suspect]
     Active Substance: RAMIPRIL
     Indication: ARRHYTHMIA
     Dosage: 0.25 DF, 1X/DAY
     Route: 048
  3. NEXIUM [Concomitant]
     Active Substance: ESOMEPRAZOLE MAGNESIUM
     Indication: PEPTIC ULCER
     Dosage: 40 MG, 1X/DAY
     Route: 048
     Dates: start: 20191129, end: 20191224
  4. VIDAZA [Concomitant]
     Active Substance: AZACITIDINE
     Indication: CHRONIC LEUKAEMIA
     Dosage: UNK
     Route: 058
     Dates: start: 201905, end: 20191003

REACTIONS (3)
  - Gastritis erosive [Recovered/Resolved]
  - Malaise [Recovering/Resolving]
  - Haemoglobin decreased [Recovering/Resolving]

NARRATIVE: CASE EVENT DATE: 20191003
